FAERS Safety Report 17749894 (Version 1)
Quarter: 2020Q2

REPORT INFORMATION
  Report Type: Spontaneous
  Country: US (occurrence: US)
  Receive Date: 20200506
  Receipt Date: 20200506
  Transmission Date: 20200714
  Serious: No
  Sender: FDA-Public Use
  Company Number: US-BAYER-2020-073585

PATIENT
  Age: 70 Year
  Sex: Female

DRUGS (4)
  1. BENEFIBER FIBER SUPPLEMENT [CYAMOPSIS TETRAGONOLOBA GUM] [Suspect]
     Active Substance: GUAR GUM
  2. MIRALAX [Suspect]
     Active Substance: POLYETHYLENE GLYCOL 3350
     Dosage: 17 G
     Route: 048
     Dates: start: 202004, end: 20200428
  3. METAMUCIL FIBRE THERAPY [Suspect]
     Active Substance: PLANTAGO OVATA SEED
  4. LAXIMAMA [Concomitant]

REACTIONS (6)
  - Dyschezia [Unknown]
  - Diarrhoea [Unknown]
  - Flatulence [Unknown]
  - Off label use [Unknown]
  - Nausea [Unknown]
  - Therapeutic product effect delayed [Unknown]
